FAERS Safety Report 25114794 (Version 1)
Quarter: 2025Q1

REPORT INFORMATION
  Report Type: Spontaneous
  Country: US (occurrence: US)
  Receive Date: 20250324
  Receipt Date: 20250324
  Transmission Date: 20250409
  Serious: No
  Sender: MEITHEAL PHARMACEUTICALS
  Company Number: US-MEITHEAL-2025MPSPO00021

PATIENT
  Sex: Female

DRUGS (4)
  1. GANIRELIX [Suspect]
     Active Substance: GANIRELIX
     Indication: In vitro fertilisation
     Route: 065
  2. GANIRELIX [Suspect]
     Active Substance: GANIRELIX
  3. LUPRON [Concomitant]
     Active Substance: LEUPROLIDE ACETATE
     Indication: Product used for unknown indication
     Route: 065
  4. Folistim [Concomitant]
     Indication: Product used for unknown indication
     Route: 065

REACTIONS (2)
  - Injection site bruising [Unknown]
  - Needle issue [Unknown]
